FAERS Safety Report 8263556-7 (Version None)
Quarter: 2012Q2

REPORT INFORMATION
  Report Type: 
  Country: None (occurrence: None)
  Receive Date: 20120405
  Receipt Date: 20120328
  Transmission Date: 20120825
  Serious: Yes (Life-Threatening)
  Sender: FDA-Public Use
  Company Number: JP-CELGENEUS-087-50794-12040425

PATIENT
  Sex: Male
  Weight: 73 kg

DRUGS (14)
  1. VIDAZA [Suspect]
     Dosage: 75 MILLIGRAM/SQ. METER
     Route: 058
     Dates: start: 20110322, end: 20110324
  2. AMLODIPINE [Concomitant]
     Route: 065
  3. VIDAZA [Suspect]
     Dosage: 25 MILLIGRAM/SQ. METER
     Route: 058
     Dates: start: 20110427, end: 20110430
  4. GRAN [Concomitant]
     Route: 065
     Dates: start: 20110714, end: 20110724
  5. TRANSAMINE CAP [Concomitant]
     Route: 065
  6. VIDAZA [Suspect]
     Dosage: 75 MILLIGRAM/SQ. METER
     Route: 058
     Dates: start: 20110315, end: 20110318
  7. GRAN [Concomitant]
     Route: 065
     Dates: start: 20110621, end: 20110706
  8. VIDAZA [Suspect]
     Dosage: 25 MILLIGRAM/SQ. METER
     Route: 058
     Dates: start: 20110502, end: 20110504
  9. WHOLE BLOOD [Concomitant]
     Route: 065
  10. ISODINE GARGLE [Concomitant]
     Route: 048
  11. FAMOTIDINE [Concomitant]
     Route: 065
  12. ADONA [Concomitant]
     Route: 065
  13. CIPROFLOXACIN [Concomitant]
     Route: 065
     Dates: start: 20110314, end: 20110318
  14. COTRIM [Concomitant]
     Route: 065

REACTIONS (1)
  - BONE MARROW FAILURE [None]
